FAERS Safety Report 6125074-1 (Version None)
Quarter: 2009Q1

REPORT INFORMATION
  Report Type: 
  Country: None (occurrence: None)
  Receive Date: 20090318
  Receipt Date: 20090305
  Transmission Date: 20090719
  Serious: Yes (Death)
  Sender: FDA-Public Use
  Company Number: CLOF-1000474

PATIENT

DRUGS (5)
  1. CLOLAR [Suspect]
     Indication: HAEMATOLOGICAL MALIGNANCY
     Dosage: QDX5(DAYS -6 TO -2),INTRAVENOUS
     Route: 042
  2. BUSULFAN (BUSULFAN) [Suspect]
     Indication: HAEMATOLOGICAL MALIGNANCY
     Dosage: 3.2 MG/KG, QDX4 (DAYS -5 TO -2),INTRAVENOUS
     Route: 042
  3. DEXAMETHASONE TAB [Concomitant]
  4. TACROLIMUS [Concomitant]
  5. MYCOPHENOLATE MOFETIL [Concomitant]

REACTIONS (1)
  - ACUTE GRAFT VERSUS HOST DISEASE [None]
